FAERS Safety Report 9438382 (Version 2)
Quarter: 2014Q1

REPORT INFORMATION
  Report Type: Spontaneous
  Country: US (occurrence: US)
  Receive Date: 20130802
  Receipt Date: 20140113
  Transmission Date: 20141002
  Serious: Yes (Death, Hospitalization)
  Sender: FDA-Public Use
  Company Number: US-B.I. PHARMACEUTICALS,INC./RIDGEFIELD-2013-BI-23031BP

PATIENT
  Age: 68 Year
  Sex: Female
  Weight: 83.91 kg

DRUGS (6)
  1. PRADAXA [Suspect]
     Dosage: 300 MG
     Route: 048
     Dates: start: 20120706, end: 20130221
  2. ZOLOFT [Concomitant]
     Dosage: 50 MG
     Route: 048
  3. LIPITOR [Concomitant]
     Dosage: 40 MG
     Route: 048
  4. PLAVIX [Concomitant]
     Dosage: 75 MG
     Route: 048
  5. NORVASC [Concomitant]
     Dosage: 10 MG
     Route: 048
  6. LASIX [Concomitant]
     Dosage: 40 MG
     Route: 048

REACTIONS (2)
  - Abdominal wall haematoma [Fatal]
  - Coagulopathy [Unknown]
